FAERS Safety Report 13038509 (Version 2)
Quarter: 2017Q1

REPORT INFORMATION
  Report Type: Spontaneous
  Country: US (occurrence: US)
  Receive Date: 20161219
  Receipt Date: 20170118
  Transmission Date: 20170428
  Serious: No
  Sender: FDA-Public Use
  Company Number: US-ASTRAZENECA-2012BM15219

PATIENT
  Age: 70 Year
  Sex: Male
  Weight: 81.6 kg

DRUGS (2)
  1. METFORMIN [Concomitant]
     Active Substance: METFORMIN HYDROCHLORIDE
     Indication: TYPE 2 DIABETES MELLITUS
     Route: 065
  2. BYDUREON [Suspect]
     Active Substance: EXENATIDE
     Indication: TYPE 2 DIABETES MELLITUS
     Route: 058

REACTIONS (3)
  - Incorrect dose administered [Recovered/Resolved]
  - Device malfunction [Unknown]
  - Injection site nodule [Recovering/Resolving]

NARRATIVE: CASE EVENT DATE: 2016
